FAERS Safety Report 8471633-0 (Version None)
Quarter: 2012Q2

REPORT INFORMATION
  Report Type: 
  Country: None (occurrence: None)
  Receive Date: 20120627
  Receipt Date: 20120620
  Transmission Date: 20120825
  Serious: Yes (Death)
  Sender: FDA-Public Use
  Company Number: GB-ROCHE-1080606

PATIENT
  Sex: Male

DRUGS (2)
  1. EPIRUBICIN HYDROCHLORIDE [Suspect]
     Indication: GASTRIC CANCER
     Dates: start: 20111025
  2. AVASTIN [Suspect]
     Indication: GASTRIC CANCER
     Dates: start: 20111025

REACTIONS (1)
  - DEATH [None]
